FAERS Safety Report 6280493-8 (Version None)
Quarter: 2009Q3

REPORT INFORMATION
  Report Type: 
  Country: None (occurrence: None)
  Receive Date: 20090724
  Receipt Date: 20080724
  Transmission Date: 20100115
  Serious: No
  Sender: FDA-Public Use
  Company Number: A0739576A

PATIENT
  Age: 71 Year
  Sex: Male

DRUGS (13)
  1. AVANDIA [Suspect]
     Dosage: 8MG PER DAY
     Route: 048
     Dates: start: 20080606
  2. METFORMIN HCL [Concomitant]
  3. GLIPIZIDE [Concomitant]
  4. BENICAR [Concomitant]
  5. AVODART [Concomitant]
  6. FLOMAX [Concomitant]
  7. VIAGRA [Concomitant]
  8. CRESTOR [Concomitant]
  9. ANDROGEL [Concomitant]
  10. VITAMIN B-12 [Concomitant]
  11. DARVOCET [Concomitant]
  12. AMBIEN [Concomitant]
  13. CITRUCEL [Concomitant]

REACTIONS (2)
  - BLOOD GLUCOSE DECREASED [None]
  - MALAISE [None]
